FAERS Safety Report 6594482-7 (Version None)
Quarter: 2010Q1

REPORT INFORMATION
  Report Type: 
  Country: None (occurrence: None)
  Receive Date: 20100218
  Receipt Date: 20100218
  Transmission Date: 20100710
  Serious: Yes (Hospitalization)
  Sender: FDA-Public Use
  Company Number: None

PATIENT
  Age: 58 Year
  Sex: Female

DRUGS (2)
  1. TOBRAMYCIN SULFATE IN SODIUM CHLORIDE 0.9% [Suspect]
     Indication: INFECTION
     Dosage: 80 MG EVERY DAY IV
     Route: 042
     Dates: start: 20091023, end: 20091025
  2. ALLOPURINOL [Suspect]
     Indication: GOUT
     Dosage: 100 MG EVERY DAY PO
     Route: 048
     Dates: start: 20091024, end: 20091027

REACTIONS (2)
  - RASH ERYTHEMATOUS [None]
  - SWELLING FACE [None]
